FAERS Safety Report 5557809-0 (Version None)
Quarter: 2007Q4

REPORT INFORMATION
  Report Type: 
  Country: None (occurrence: None)
  Receive Date: 20071214
  Receipt Date: 20071207
  Transmission Date: 20080405
  Serious: Yes (Other)
  Sender: FDA-Public Use
  Company Number: HQWYE840328JUN07

PATIENT
  Age: 25 Year
  Sex: Female

DRUGS (7)
  1. PANTOPRAZOLE SODIUM [Suspect]
     Indication: GASTRIC ULCER
     Route: 048
     Dates: start: 20070510, end: 20070603
  2. ONDANSETRON [Concomitant]
     Dosage: ^DF^
     Route: 065
  3. SEREVENT [Concomitant]
     Dosage: UNKNOWN
     Route: 065
  4. VENTOLIN [Concomitant]
     Dosage: UNKNOWN
     Route: 065
  5. SINGULAIR [Concomitant]
     Dosage: UNKNOWN
     Route: 065
  6. CIPRAMIL [Concomitant]
     Route: 048
  7. MICROGYNON [Concomitant]
     Dosage: ^1/DAY 1 DF^
     Route: 065

REACTIONS (4)
  - AGITATION [None]
  - ANGER [None]
  - ANXIETY [None]
  - SUICIDAL IDEATION [None]
